FAERS Safety Report 15719361 (Version 1)
Quarter: 2018Q4

REPORT INFORMATION
  Report Type: Spontaneous
  Country: US (occurrence: US)
  Receive Date: 20181213
  Receipt Date: 20181213
  Transmission Date: 20190205
  Serious: Yes (Hospitalization, Other)
  Sender: FDA-Public Use
  Company Number: US-OTSUKA-2016_020496

PATIENT
  Age: 54 Year
  Sex: Male

DRUGS (6)
  1. ABILIFY [Suspect]
     Active Substance: ARIPIPRAZOLE
     Indication: BIPOLAR DISORDER
     Dosage: 2 MG, UNK
     Route: 065
     Dates: start: 200711, end: 20140925
  2. DIVALPROEX [Concomitant]
     Active Substance: DIVALPROEX SODIUM
     Indication: PRODUCT USED FOR UNKNOWN INDICATION
     Dosage: 500 MG, UNK
     Route: 048
  3. BUPROPION. [Concomitant]
     Active Substance: BUPROPION
     Indication: PRODUCT USED FOR UNKNOWN INDICATION
     Dosage: 200 MG, BID
     Route: 048
  4. ABILIFY [Suspect]
     Active Substance: ARIPIPRAZOLE
     Indication: MAJOR DEPRESSION
     Dosage: 5 MG, QD (EVERY MORNING)
     Route: 048
     Dates: end: 201409
  5. RISPERIDONE. [Concomitant]
     Active Substance: RISPERIDONE
     Indication: PRODUCT USED FOR UNKNOWN INDICATION
     Dosage: UNK
     Route: 065
     Dates: start: 20100101
  6. CYMBALTA [Concomitant]
     Active Substance: DULOXETINE HYDROCHLORIDE
     Indication: PRODUCT USED FOR UNKNOWN INDICATION
     Dosage: 30 MG, QD (EVERY MORNING)
     Route: 048

REACTIONS (15)
  - Economic problem [Unknown]
  - Pituitary tumour benign [Unknown]
  - Vertigo [Unknown]
  - Injury [Unknown]
  - Stress [Unknown]
  - Mental disorder [Unknown]
  - Emotional distress [Unknown]
  - Dyspepsia [Unknown]
  - Divorced [Unknown]
  - Homeless [Unknown]
  - Crying [Unknown]
  - Gambling disorder [Not Recovered/Not Resolved]
  - Suicidal ideation [Unknown]
  - Limb injury [Unknown]
  - Headache [Unknown]

NARRATIVE: CASE EVENT DATE: 201207
